FAERS Safety Report 4616284-0 (Version None)
Quarter: 2005Q1

REPORT INFORMATION
  Report Type: 
  Country: None (occurrence: None)
  Receive Date: 20050321
  Receipt Date: 20050308
  Transmission Date: 20050727
  Serious: Yes (Other)
  Sender: FDA-Public Use
  Company Number: 2005029241

PATIENT
  Sex: Male
  Weight: 68.0396 kg

DRUGS (4)
  1. VIAGRA [Suspect]
     Indication: ERECTILE DYSFUNCTION
     Dosage: 50 MG (50 MG, AS NECESSARY)
     Dates: start: 20000101
  2. LANSOPRAZOLE [Concomitant]
  3. ASPIRIN [Concomitant]
  4. RANITIDINE HYDROCHLORIDE [Concomitant]

REACTIONS (4)
  - BLOOD CHOLESTEROL INCREASED [None]
  - CARDIAC STRESS TEST ABNORMAL [None]
  - CHEST PAIN [None]
  - CORONARY ARTERY OCCLUSION [None]
